FAERS Safety Report 19245307 (Version 2)
Quarter: 2021Q2

REPORT INFORMATION
  Report Type: Spontaneous
  Country: PT (occurrence: PT)
  Receive Date: 20210511
  Receipt Date: 20210517
  Transmission Date: 20210717
  Serious: Yes (Other)
  Sender: FDA-Public Use
  Company Number: PT-US-PROVELL PHARMACEUTICALS LLC-E2B_90083238

PATIENT
  Age: 77 Year
  Sex: Female

DRUGS (4)
  1. PERINDOPRIL/INDAPAMIDE [Concomitant]
     Active Substance: INDAPAMIDE\PERINDOPRIL
     Indication: HYPERTENSION
     Route: 048
  2. VICTAN [Concomitant]
     Active Substance: ETHYL LOFLAZEPATE
     Indication: PRODUCT USED FOR UNKNOWN INDICATION
     Route: 048
  3. EUTIROX [Suspect]
     Active Substance: LEVOTHYROXINE SODIUM
     Indication: HYPOTHYROIDISM
     Route: 048
     Dates: start: 202011
  4. XANAX [Concomitant]
     Active Substance: ALPRAZOLAM
     Indication: PRODUCT USED FOR UNKNOWN INDICATION
     Dosage: TABLET
     Route: 048

REACTIONS (6)
  - Hypertensive crisis [Unknown]
  - Ear pain [Unknown]
  - Memory impairment [Unknown]
  - Balance disorder [Unknown]
  - Fatigue [Unknown]
  - Tinnitus [Unknown]

NARRATIVE: CASE EVENT DATE: 202011
